FAERS Safety Report 8168951-2 (Version None)
Quarter: 2012Q1

REPORT INFORMATION
  Report Type: 
  Country: None (occurrence: None)
  Receive Date: 20120227
  Receipt Date: 20120222
  Transmission Date: 20120608
  Serious: No
  Sender: FDA-Public Use
  Company Number: JP-B.I. PHARMACEUTICALS,INC./RIDGEFIELD-2012-BP-01891NB

PATIENT
  Sex: Male

DRUGS (13)
  1. LIPITOR [Concomitant]
     Dosage: 10 MG
     Route: 065
  2. ASPIRIN [Concomitant]
     Dosage: 100 MG
     Route: 065
  3. LANSOPRAZOLE [Concomitant]
     Dosage: 15 MG
     Route: 065
  4. KEPPRA [Concomitant]
     Dosage: 1000 MG
     Route: 065
  5. MUCOSOLVAN [Concomitant]
     Dosage: 45 MG
     Route: 065
  6. MAGMITT [Concomitant]
     Dosage: 660 MG
     Route: 065
  7. PRADAXA [Suspect]
     Indication: ATRIAL FIBRILLATION
     Dosage: 300 MG
     Route: 065
     Dates: end: 20120130
  8. ISOSORBIDE MONONITRATE [Concomitant]
     Dosage: 20 MG
     Route: 065
  9. SUNRYTHM [Concomitant]
     Dosage: 75 MG
     Route: 065
  10. CEFAZOLIN SODIUM [Concomitant]
     Dosage: 6 G
     Route: 065
  11. EPLERENONE [Concomitant]
     Dosage: 50 MG
     Route: 065
  12. LASIX [Concomitant]
     Route: 065
  13. PHENYTOIN SODIUM CAP [Concomitant]
     Dosage: 240 MG
     Route: 065

REACTIONS (3)
  - WRONG TECHNIQUE IN DRUG USAGE PROCESS [None]
  - VOMITING [None]
  - ACTIVATED PARTIAL THROMBOPLASTIN TIME PROLONGED [None]
